FAERS Safety Report 5891210-5 (Version None)
Quarter: 2008Q3

REPORT INFORMATION
  Report Type: 
  Country: None (occurrence: None)
  Receive Date: 20080918
  Receipt Date: 20080918
  Transmission Date: 20090109
  Serious: Yes (Hospitalization)
  Sender: FDA-Public Use
  Company Number: None

PATIENT
  Age: 64 Year
  Sex: Female
  Weight: 72.5755 kg

DRUGS (1)
  1. IMITREX [Suspect]
     Indication: MIGRAINE
     Dosage: 1 PILL AT ONSET OF 9 PILLS A MONTH PO
     Route: 048
     Dates: start: 19880101, end: 20080915

REACTIONS (4)
  - ABDOMINAL DISCOMFORT [None]
  - BLOOD PRESSURE FLUCTUATION [None]
  - GASTRIC DISORDER [None]
  - RASH [None]
